FAERS Safety Report 5816909-8 (Version None)
Quarter: 2008Q3

REPORT INFORMATION
  Report Type: 
  Country: None (occurrence: None)
  Receive Date: 20080722
  Receipt Date: 20080519
  Transmission Date: 20090109
  Serious: Yes (Hospitalization)
  Sender: FDA-Public Use
  Company Number: HQWYE773318MAY05

PATIENT
  Sex: Male
  Weight: 76 kg

DRUGS (5)
  1. PANTOPRAZOLE SODIUM [Suspect]
     Indication: GASTROOESOPHAGEAL REFLUX DISEASE
     Dosage: 40 MG (FREQUENCY UNKNOWN)
     Route: 048
     Dates: start: 20010402, end: 20040331
  2. PANTOPRAZOLE SODIUM [Suspect]
     Dosage: 80 MG (FREQUENCY UNKNOWN)
     Dates: start: 20040401, end: 20040510
  3. PANTOPRAZOLE SODIUM [Suspect]
     Dosage: 40 MG (FREQUENCY UNKNOWN)
     Route: 048
     Dates: start: 20040511, end: 20060403
  4. DUSODRIL - SLOW RELEASE [Concomitant]
     Indication: CARDIOVASCULAR DISORDER
     Dosage: 100 MG (FREQUENCY UNKNOWN)
     Route: 048
     Dates: start: 19900101, end: 20050412
  5. ISOSORBIDE DINITRATE [Concomitant]
     Indication: ANGINA PECTORIS
     Route: 048
     Dates: start: 19960801

REACTIONS (3)
  - CONCUSSION [None]
  - FALL [None]
  - SKULL FRACTURE [None]
